FAERS Safety Report 15361580 (Version 1)
Quarter: 2018Q3

REPORT INFORMATION
  Report Type: Spontaneous
  Country: US (occurrence: US)
  Receive Date: 20180907
  Receipt Date: 20180907
  Transmission Date: 20181010
  Serious: Yes (Hospitalization, Other)
  Sender: FDA-Public Use
  Company Number: PHHY2018US084480

PATIENT
  Age: 62 Year
  Sex: Male

DRUGS (1)
  1. PAZOPANIB [Suspect]
     Active Substance: PAZOPANIB
     Indication: SOFT TISSUE SARCOMA
     Route: 065

REACTIONS (5)
  - Malignant neoplasm progression [Unknown]
  - Peripheral nerve sheath tumour malignant [Unknown]
  - Anaemia [Unknown]
  - Metastasis [Unknown]
  - Cancer pain [Unknown]
